FAERS Safety Report 17216549 (Version 5)
Quarter: 2020Q3

REPORT INFORMATION
  Report Type: Spontaneous
  Country: US (occurrence: US)
  Receive Date: 20191230
  Receipt Date: 20200724
  Transmission Date: 20201102
  Serious: Yes (Hospitalization)
  Sender: FDA-Public Use
  Company Number: US-STASON PHARMACEUTICALS, INC.-2078343

PATIENT
  Age: 17 Year
  Sex: Male
  Weight: 88.7 kg

DRUGS (1)
  1. MERCAPTOPURINE. [Suspect]
     Active Substance: MERCAPTOPURINE

REACTIONS (4)
  - Sepsis [None]
  - Febrile neutropenia [None]
  - Device related infection [None]
  - Lower respiratory tract infection fungal [None]
